FAERS Safety Report 8449744-5 (Version None)
Quarter: 2012Q2

REPORT INFORMATION
  Report Type: 
  Country: None (occurrence: None)
  Receive Date: 20120613
  Receipt Date: 20120613
  Transmission Date: 20120825
  Serious: Yes (Hospitalization)
  Sender: FDA-Public Use
  Company Number: None

PATIENT
  Age: 64 Year
  Sex: Male
  Weight: 91.5 kg

DRUGS (2)
  1. BOCEPREVIR [Suspect]
     Indication: HEPATITIS C
     Dosage: 200 MG OTHER PO
     Route: 048
     Dates: start: 20120227
  2. RIBAVIRIN [Suspect]
     Dosage: 600 MG BID PO
     Route: 048
     Dates: start: 20120227, end: 20120331

REACTIONS (2)
  - ANAEMIA [None]
  - SYNCOPE [None]
